FAERS Safety Report 12561198 (Version 2)
Quarter: 2016Q3

REPORT INFORMATION
  Report Type: Spontaneous
  Country: US (occurrence: US)
  Receive Date: 20160715
  Receipt Date: 20160902
  Transmission Date: 20161109
  Serious: Yes (Other)
  Sender: FDA-Public Use
  Company Number: US-009507513-1607USA006572

PATIENT

DRUGS (3)
  1. ASPIRIN. [Concomitant]
     Active Substance: ASPIRIN
  2. ZONTIVITY [Suspect]
     Active Substance: VORAPAXAR SULFATE
     Route: 048
  3. BRILINTA [Concomitant]
     Active Substance: TICAGRELOR

REACTIONS (1)
  - Gastric haemorrhage [Unknown]
